FAERS Safety Report 4428128-0 (Version None)
Quarter: 2004Q3

REPORT INFORMATION
  Report Type: 
  Country: None (occurrence: None)
  Receive Date: 20040726
  Receipt Date: 20040520
  Transmission Date: 20050211
  Serious: No
  Sender: FDA-Public Use
  Company Number: USA031254723

PATIENT
  Age: 68 Year
  Sex: Female

DRUGS (12)
  1. FORTEO [Suspect]
     Indication: OSTEOPOROSIS
     Dosage: 20 UG/1 DAY
     Dates: start: 20031212
  2. ALBUTEROL [Concomitant]
  3. ATROVENT [Concomitant]
  4. CALCIUM WITH VITAMIN D [Concomitant]
  5. ATIVAN [Concomitant]
  6. WELLBUTRIN (BUPROPRION HYDROCHLORIDE) [Concomitant]
  7. ADVAIR DISKUS 100/50 [Concomitant]
  8. VITAMIN E [Concomitant]
  9. OMEGA [Concomitant]
  10. ESTROGEL [Concomitant]
  11. ACIDOPHILUS [Concomitant]
  12. NEXIUM [Concomitant]

REACTIONS (22)
  - ARTHRALGIA [None]
  - ASTHENIA [None]
  - BRONCHOSCOPY [None]
  - CHEST DISCOMFORT [None]
  - COUGH [None]
  - DIARRHOEA [None]
  - DIZZINESS [None]
  - FATIGUE [None]
  - FEELING ABNORMAL [None]
  - HEADACHE [None]
  - HYPERHIDROSIS [None]
  - INFLUENZA [None]
  - INJECTION SITE ERYTHEMA [None]
  - INJECTION SITE RASH [None]
  - INJECTION SITE REACTION [None]
  - POLLAKIURIA [None]
  - POLYDIPSIA [None]
  - PYREXIA [None]
  - RHINITIS [None]
  - SINUS DISORDER [None]
  - VERTIGO [None]
  - VOMITING [None]
